FAERS Safety Report 5725862-7 (Version None)
Quarter: 2008Q2

REPORT INFORMATION
  Report Type: 
  Country: None (occurrence: None)
  Receive Date: 20080430
  Receipt Date: 20080421
  Transmission Date: 20081010
  Serious: Yes (Death, Hospitalization)
  Sender: FDA-Public Use
  Company Number: 163-21880-08041466

PATIENT
  Age: 71 Year
  Sex: Female
  Weight: 63.8 kg

DRUGS (16)
  1. REVLIMID [Suspect]
     Indication: ACUTE MYELOID LEUKAEMIA
     Dosage: 50 MG, QD, ORAL
     Route: 048
     Dates: start: 20080402, end: 20080401
  2. ALBUTEROL [Concomitant]
  3. ALLOPURINOL [Concomitant]
  4. AMINOCAPROIC ACID [Concomitant]
  5. CETIRIZINE HCL [Concomitant]
  6. ESOMEPRAZOLE (ESOMEPRAZOLE)Q [Concomitant]
  7. ADVAIR DISKUS 100/50 [Concomitant]
  8. HYDROCHLOROTHIAZICE (HYDROCHLOROTHIAZE) [Concomitant]
  9. ATROVENT [Concomitant]
  10. PREDNISONE TAB [Concomitant]
  11. LISINOPRIL [Concomitant]
  12. NICOTINE (NICOTINE) (POULTICE OR PATCH) [Concomitant]
  13. TIOTROPIUM (TIOTROPIUM) (CAPSULES) [Concomitant]
  14. VALACYCLOVIR (VALACICLOVIR) [Concomitant]
  15. VITAMIN E [Concomitant]
  16. MEROPENEM (MEROPENEM) [Concomitant]

REACTIONS (3)
  - DYSPNOEA [None]
  - HAEMOPTYSIS [None]
  - PLATELET COUNT DECREASED [None]
